FAERS Safety Report 7559961-4 (Version None)
Quarter: 2011Q2

REPORT INFORMATION
  Report Type: 
  Country: None (occurrence: None)
  Receive Date: 20110621
  Receipt Date: 20110610
  Transmission Date: 20111010
  Serious: Yes (Hospitalization)
  Sender: FDA-Public Use
  Company Number: PHHY2011US51553

PATIENT
  Age: 69 Year
  Sex: Female
  Weight: 82.54 kg

DRUGS (1)
  1. TOBI [Suspect]
     Indication: COR PULMONALE
     Dosage: 300 MG, BID (28 DAYS ON AND 28 DAYS OFF)
     Dates: start: 20101202, end: 20110323

REACTIONS (1)
  - COMPLICATIONS OF TRANSPLANT SURGERY [None]
